FAERS Safety Report 13263575 (Version 1)
Quarter: 2017Q1

REPORT INFORMATION
  Report Type: Spontaneous
  Country: US (occurrence: US)
  Receive Date: 20170223
  Receipt Date: 20170223
  Transmission Date: 20170428
  Serious: Yes (Other)
  Sender: FDA-Public Use
  Company Number: US-ASTRAZENECA-2017SE18924

PATIENT
  Age: 84 Year
  Sex: Male

DRUGS (5)
  1. BRILINTA [Suspect]
     Active Substance: TICAGRELOR
     Indication: CORONARY ARTERY BYPASS
     Route: 048
     Dates: end: 20170216
  2. BRILINTA [Suspect]
     Active Substance: TICAGRELOR
     Indication: ANGINA PECTORIS
     Route: 048
     Dates: end: 20170216
  3. METOPROLOL TARTRATE. [Suspect]
     Active Substance: METOPROLOL TARTRATE
     Route: 048
     Dates: end: 20170216
  4. BRILINTA [Suspect]
     Active Substance: TICAGRELOR
     Indication: STENT PLACEMENT
     Route: 048
     Dates: end: 20170216
  5. ASPIRIN. [Concomitant]
     Active Substance: ASPIRIN
     Indication: CORONARY ARTERY DISEASE
     Route: 048

REACTIONS (2)
  - Fatigue [Not Recovered/Not Resolved]
  - Heart rate decreased [Not Recovered/Not Resolved]

NARRATIVE: CASE EVENT DATE: 20170210
